FAERS Safety Report 9920901 (Version 3)
Quarter: 2014Q1

REPORT INFORMATION
  Report Type: Spontaneous
  Country: US (occurrence: US)
  Receive Date: 20140225
  Receipt Date: 20140326
  Transmission Date: 20141002
  Serious: Yes (Hospitalization)
  Sender: FDA-Public Use
  Company Number: US-009507513-1402USA008356

PATIENT
  Age: 48 Year
  Sex: Male

DRUGS (4)
  1. ISENTRESS [Suspect]
     Indication: HIV INFECTION
     Dosage: 400 MG, BID
     Route: 048
     Dates: start: 201305
  2. TRUVADA [Concomitant]
     Dosage: UNK
     Dates: start: 201305
  3. ACYCLOVIR [Concomitant]
     Dosage: UNK
  4. DAPSONE [Concomitant]
     Dosage: UNK

REACTIONS (5)
  - Urinary incontinence [Recovering/Resolving]
  - Muscle spasms [Recovering/Resolving]
  - Hypoaesthesia [Recovering/Resolving]
  - Pyrexia [Recovering/Resolving]
  - Weight decreased [Recovering/Resolving]
